FAERS Safety Report 6248539-0 (Version None)
Quarter: 2009Q2

REPORT INFORMATION
  Report Type: 
  Country: None (occurrence: None)
  Receive Date: 20090629
  Receipt Date: 20090624
  Transmission Date: 20091009
  Serious: Yes (Death, Hospitalization)
  Sender: FDA-Public Use
  Company Number: US-BRISTOL-MYERS SQUIBB COMPANY-14678833

PATIENT
  Age: 71 Year
  Sex: Female
  Weight: 56 kg

DRUGS (13)
  1. ORENCIA [Suspect]
     Indication: RHEUMATOID ARTHRITIS
     Dosage: RECEIVED 3RD DOSE ON 30APR09
     Route: 042
     Dates: start: 20090402
  2. CELEBREX [Concomitant]
  3. HYDROXYCHLOROQUINE SULFATE [Concomitant]
  4. NEXIUM [Concomitant]
  5. ZOLOFT [Concomitant]
  6. HYDROCHLOROTHIAZIDE [Concomitant]
  7. VITAMIN B-12 [Concomitant]
     Dosage: INJECTION
  8. CALCIUM [Concomitant]
  9. MULTI-VITAMIN [Concomitant]
  10. ASPIRIN [Concomitant]
  11. XANAX [Concomitant]
  12. CLARITIN [Concomitant]
  13. BENADRYL [Concomitant]

REACTIONS (3)
  - NAUSEA [None]
  - PNEUMONIA [None]
  - VOMITING [None]
